FAERS Safety Report 8975609 (Version 1)
Quarter: 2012Q4

REPORT INFORMATION
  Report Type: 
  Country: US (occurrence: US)
  Receive Date: 20121219
  Receipt Date: 20121219
  Transmission Date: 20130627
  Serious: No
  Sender: FDA-Public Use
  Company Number: US-PFIZER INC-2012319016

PATIENT

DRUGS (1)
  1. AMLODIPINE BESILATE [Suspect]
     Dosage: 2.5 mg, daily

REACTIONS (4)
  - Headache [Unknown]
  - Ear discomfort [Unknown]
  - Pain [Unknown]
  - Discomfort [Unknown]
